FAERS Safety Report 20152489 (Version 2)
Quarter: 2022Q1

REPORT INFORMATION
  Report Type: Spontaneous
  Country: US (occurrence: US)
  Receive Date: 20211206
  Receipt Date: 20220118
  Transmission Date: 20220423
  Serious: Yes (Other)
  Sender: FDA-Public Use
  Company Number: US-UROGEN PHARMA LTD.-2021-UGN-000104

PATIENT

DRUGS (4)
  1. JELMYTO [Suspect]
     Active Substance: MITOMYCIN
     Indication: Transitional cell cancer of the renal pelvis and ureter
     Dosage: 10 CC ONE TIMES PER WEEK (INSTILLATION)
     Dates: start: 20211027, end: 20211027
  2. JELMYTO [Suspect]
     Active Substance: MITOMYCIN
     Dosage: 10 CC ONE TIMES PER WEEK (INSTILLATION)
     Dates: start: 20211103, end: 20211103
  3. JELMYTO [Suspect]
     Active Substance: MITOMYCIN
     Dosage: 10 CC ONE TIMES PER WEEK (INSTILLATION)
     Dates: start: 20211110, end: 20211110
  4. JELMYTO [Suspect]
     Active Substance: MITOMYCIN
     Dosage: 10 CC ONE TIMES PER WEEK (INSTILLATION)
     Dates: start: 20211116, end: 20211116

REACTIONS (3)
  - Pelvi-ureteric obstruction [Not Recovered/Not Resolved]
  - Flank pain [Recovered/Resolved]
  - Pruritus [Recovered/Resolved]

NARRATIVE: CASE EVENT DATE: 20211117
